FAERS Safety Report 14244465 (Version 1)
Quarter: 2017Q4

REPORT INFORMATION
  Report Type: Spontaneous
  Country: CA (occurrence: CA)
  Receive Date: 20171201
  Receipt Date: 20171201
  Transmission Date: 20180321
  Serious: Yes (Death, Life-Threatening, Other)
  Sender: FDA-Public Use
  Company Number: PHHY2017CA175842

PATIENT
  Age: 6 Day
  Sex: Female
  Weight: 3.7 kg

DRUGS (1)
  1. ACICLOVIR [Suspect]
     Active Substance: ACYCLOVIR
     Indication: CONGENITAL HERPES SIMPLEX INFECTION
     Route: 065

REACTIONS (4)
  - Hepatic failure [Fatal]
  - Renal failure neonatal [Fatal]
  - Neonatal respiratory failure [Fatal]
  - Drug ineffective [Unknown]
